FAERS Safety Report 25319232 (Version 1)
Quarter: 2025Q2

REPORT INFORMATION
  Report Type: Spontaneous
  Country: ES (occurrence: ES)
  Receive Date: 20250515
  Receipt Date: 20250515
  Transmission Date: 20250716
  Serious: Yes (Other)
  Sender: BAYER HEALTHCARE PHARMACEUTICALS INC.
  Company Number: ES-BAYER-2025A062910

PATIENT
  Age: 80 Year
  Sex: Male

DRUGS (13)
  1. NUBEQA [Suspect]
     Active Substance: DAROLUTAMIDE
     Indication: Prostate cancer stage IV
     Dosage: 600 MG, BID
     Dates: start: 202210
  2. DOCETAXEL [Concomitant]
     Active Substance: DOCETAXEL
     Indication: Prostate cancer stage IV
     Dosage: 75 MG/M2, Q3WK
     Dates: start: 202210, end: 202210
  3. DOCETAXEL [Concomitant]
     Active Substance: DOCETAXEL
     Indication: Prostate cancer stage IV
     Dosage: 75 MG/M2, Q3WK
  4. DOCETAXEL [Concomitant]
     Active Substance: DOCETAXEL
     Indication: Prostate cancer stage IV
     Dosage: 75 MG/M2, Q3WK
  5. DOCETAXEL [Concomitant]
     Active Substance: DOCETAXEL
     Indication: Prostate cancer stage IV
     Dosage: 75 MG/M2, Q3WK
  6. DOCETAXEL [Concomitant]
     Active Substance: DOCETAXEL
     Indication: Prostate cancer stage IV
     Dosage: 75 MG/M2, Q3WK
  7. DOCETAXEL [Concomitant]
     Active Substance: DOCETAXEL
     Indication: Prostate cancer stage IV
     Dosage: 75 MG/M2, Q3WK
  8. DOCETAXEL [Concomitant]
     Active Substance: DOCETAXEL
     Indication: Prostate cancer stage IV
     Dosage: 75 MG/M2, Q3WK
     Dates: end: 202301
  9. DOCETAXEL [Concomitant]
     Active Substance: DOCETAXEL
     Indication: Prostate cancer stage IV
     Dosage: 75 MG/M2, Q3WK
     Dates: start: 202502, end: 202502
  10. CABAZITAXEL [Concomitant]
     Active Substance: CABAZITAXEL
     Dosage: 20 MG/M2, Q3WK
     Route: 042
     Dates: start: 202411, end: 202411
  11. CABAZITAXEL [Concomitant]
     Active Substance: CABAZITAXEL
     Dosage: 20 MG/M2, Q3WK
     Route: 042
     Dates: start: 202502, end: 202502
  12. CABAZITAXEL [Concomitant]
     Active Substance: CABAZITAXEL
     Dosage: 20 MG/M2, Q3WK
     Route: 042
     Dates: start: 2025, end: 2025
  13. CABAZITAXEL [Concomitant]
     Active Substance: CABAZITAXEL
     Dosage: 20 MG/M2, Q3WK
     Route: 042
     Dates: start: 202504, end: 202504

REACTIONS (10)
  - Prostatic specific antigen increased [None]
  - Constipation [Recovering/Resolving]
  - Bladder spasm [Recovering/Resolving]
  - Abdominal discomfort [None]
  - Suprapubic pain [None]
  - Weight decreased [None]
  - Decreased appetite [None]
  - Dysgeusia [None]
  - Alopecia [None]
  - Asthenia [None]

NARRATIVE: CASE EVENT DATE: 20250101
